FAERS Safety Report 11094150 (Version 1)
Quarter: 2015Q2

REPORT INFORMATION
  Report Type: Spontaneous
  Country: US (occurrence: US)
  Receive Date: 20150506
  Receipt Date: 20150506
  Transmission Date: 20150821
  Serious: Yes (Other)
  Sender: FDA-Public Use
  Company Number: US-GLAXOSMITHKLINE-US2015GSK060502

PATIENT
  Age: 69 Year
  Sex: Female

DRUGS (1)
  1. VALTREX [Suspect]
     Active Substance: VALACYCLOVIR HYDROCHLORIDE
     Indication: HERPES VIRUS INFECTION
     Dosage: 500 MG, UNK
     Dates: start: 200312

REACTIONS (3)
  - Surgery [Unknown]
  - Staphylococcal infection [Unknown]
  - Foot operation [Unknown]

NARRATIVE: CASE EVENT DATE: 20141010
